FAERS Safety Report 24762196 (Version 1)
Quarter: 2024Q4

REPORT INFORMATION
  Report Type: Spontaneous
  Country: US (occurrence: US)
  Receive Date: 20241221
  Receipt Date: 20241221
  Transmission Date: 20250115
  Serious: Yes (Other)
  Sender: AMGEN
  Company Number: US-AMGEN-USASP2024247295

PATIENT

DRUGS (6)
  1. PEGFILGRASTIM [Suspect]
     Active Substance: PEGFILGRASTIM
     Indication: Prophylaxis
     Dosage: (1-6 MG ON DAY 1)
     Route: 058
  2. CYCLOPHOSPHAMIDE [Concomitant]
     Active Substance: CYCLOPHOSPHAMIDE
     Dosage: 600 MILLIGRAM/SQ. METER
  3. PACLITAXEL [Concomitant]
     Active Substance: PACLITAXEL
     Dosage: 175 MILLIGRAM/SQ. METER (ON DAY 1I OF EVERY 14 DAYS CYCLE)
  4. TRASTUZUMAB [Concomitant]
     Active Substance: TRASTUZUMAB
     Dosage: 6 MILLIGRAM/KILOGRAM (ON DAY 1 OF CYCLE 1)
     Route: 040
  5. TRASTUZUMAB [Concomitant]
     Active Substance: TRASTUZUMAB
     Dosage: 6 MILLIGRAM/KILOGRAM (ON DAY 1 OF CYCLE 1)
     Route: 040
  6. TRASTUZUMAB [Concomitant]
     Active Substance: TRASTUZUMAB
     Dosage: 6 MILLIGRAM/KILOGRAM (ON DAY 1 EVERY 21 DAYS)
     Route: 040

REACTIONS (23)
  - Pneumonitis [Unknown]
  - Constipation [Unknown]
  - Diarrhoea [Unknown]
  - Ejection fraction decreased [Unknown]
  - Febrile neutropenia [Unknown]
  - Hyperglycaemia [Unknown]
  - Breast cancer [Unknown]
  - Neutrophil count decreased [Unknown]
  - Peripheral sensory neuropathy [Unknown]
  - Hyponatraemia [Unknown]
  - Metastasis [Unknown]
  - Dermatitis exfoliative generalised [Unknown]
  - Bone pain [Unknown]
  - Stomatitis [Unknown]
  - Platelet count decreased [Unknown]
  - Therapy change [Unknown]
  - Hot flush [Unknown]
  - Myalgia [Unknown]
  - Nausea [Unknown]
  - Fatigue [Unknown]
  - Anaemia [Unknown]
  - Arthralgia [Unknown]
  - Oedema peripheral [Unknown]
